FAERS Safety Report 8313033-X (Version None)
Quarter: 2012Q2

REPORT INFORMATION
  Report Type: 
  Country: None (occurrence: None)
  Receive Date: 20120424
  Receipt Date: 20120409
  Transmission Date: 20120825
  Serious: Yes (Hospitalization)
  Sender: FDA-Public Use
  Company Number: B0792122A

PATIENT
  Sex: Male
  Weight: 54.8852 kg

DRUGS (5)
  1. CEFUROXIME SODIUM [Suspect]
     Dosage: TWICE PER DAY / INTRAVENOUS
     Route: 042
  2. ASCORBIC ACID [Concomitant]
  3. CHYMOTRYPSIN [Concomitant]
  4. GENTAMICIN SULFATE [Concomitant]
  5. DEXAMETHASONE [Concomitant]

REACTIONS (8)
  - NEUTROPENIA [None]
  - OROPHARYNGEAL PAIN [None]
  - CONDITION AGGRAVATED [None]
  - THROMBOCYTOPENIA [None]
  - MOUTH HAEMORRHAGE [None]
  - MOUTH ULCERATION [None]
  - GRANULOCYTOPENIA [None]
  - URINE KETONE BODY PRESENT [None]
